FAERS Safety Report 6977999-2 (Version None)
Quarter: 2010Q3

REPORT INFORMATION
  Report Type: 
  Country: None (occurrence: None)
  Receive Date: 20100913
  Receipt Date: 20100826
  Transmission Date: 20110219
  Serious: No
  Sender: FDA-Public Use
  Company Number: US-PFIZER INC-2010108518

PATIENT
  Sex: Female
  Weight: 53.061 kg

DRUGS (4)
  1. ZOLOFT [Suspect]
     Indication: PANIC ATTACK
     Dosage: 50 MG, 1X/DAY
     Dates: start: 20100701
  2. ZOLOFT [Suspect]
     Dosage: 100 MG, DAILY
     Dates: start: 20100701
  3. XANAX [Concomitant]
     Dosage: UNK
  4. VITAMINS [Concomitant]
     Dosage: UNK

REACTIONS (1)
  - PAROSMIA [None]
